FAERS Safety Report 6253146-X (Version None)
Quarter: 2009Q2

REPORT INFORMATION
  Report Type: 
  Country: None (occurrence: None)
  Receive Date: 20090629
  Receipt Date: 20090629
  Transmission Date: 20091009
  Serious: No
  Sender: FDA-Public Use
  Company Number: None

PATIENT
  Age: 39 Year
  Sex: Female

DRUGS (1)
  1. LYRICA [Suspect]
     Dosage: BID PO
     Route: 048
     Dates: start: 20090422, end: 20090620

REACTIONS (1)
  - OEDEMA PERIPHERAL [None]
